FAERS Safety Report 4839844-0 (Version None)
Quarter: 2005Q4

REPORT INFORMATION
  Report Type: 
  Country: None (occurrence: None)
  Receive Date: 20051125
  Receipt Date: 20051111
  Transmission Date: 20060501
  Serious: Yes (Other)
  Sender: FDA-Public Use
  Company Number: HQWYE631918NOV05

PATIENT
  Age: 44 Year
  Sex: Male

DRUGS (6)
  1. RAPAMUNE [Suspect]
     Indication: PROPHYLAXIS AGAINST TRANSPLANT REJECTION
     Dosage: 2 MG 1X PER 1 DAY
     Route: 048
     Dates: start: 20040828
  2. CYCLOSPORINE [Concomitant]
  3. PREDNISONE [Concomitant]
  4. NYSTATINE (NYSTATIN) [Concomitant]
  5. RANITIDINE [Concomitant]
  6. SULFAMETHOXAZOLE + TRIMETHOPRIM [Concomitant]

REACTIONS (1)
  - KIDNEY TRANSPLANT REJECTION [None]
